FAERS Safety Report 7534954-1 (Version None)
Quarter: 2011Q2

REPORT INFORMATION
  Report Type: 
  Country: None (occurrence: None)
  Receive Date: 20110609
  Receipt Date: 20090202
  Transmission Date: 20111010
  Serious: Yes (Hospitalization)
  Sender: FDA-Public Use
  Company Number: PHHY2008GB23970

PATIENT
  Sex: Female
  Weight: 102 kg

DRUGS (8)
  1. SERETIDE [Concomitant]
     Dosage: 2 PUFFS DAILY
  2. CLOZAPINE [Suspect]
     Indication: SCHIZOPHRENIA
     Dosage: 150 MG, BID
     Route: 048
     Dates: start: 20080909, end: 20081005
  3. DEPAKOTE [Concomitant]
     Indication: AFFECTIVE DISORDER
     Dosage: 1000 MG, BID
     Route: 048
  4. CLOZAPINE [Suspect]
  5. CLONAZEPAM [Concomitant]
     Indication: PSYCHOTIC DISORDER
     Dosage: 1 MG MANE, 2 MG OCTE
     Route: 048
  6. LAMOTRIGINE [Concomitant]
     Indication: AFFECTIVE DISORDER
     Dosage: 150 MG, BID
     Route: 048
  7. QUETIAPINE [Concomitant]
     Indication: PSYCHOTIC DISORDER
     Dosage: 200 MG, BID
     Route: 048
  8. SERTRALINE HYDROCHLORIDE [Suspect]
     Indication: DEPRESSION
     Dosage: 200 MG, QD
     Route: 048

REACTIONS (8)
  - LOWER RESPIRATORY TRACT INFECTION [None]
  - TACHYCARDIA [None]
  - BODY TEMPERATURE INCREASED [None]
  - MONOCYTE COUNT INCREASED [None]
  - TACHYPNOEA [None]
  - C-REACTIVE PROTEIN INCREASED [None]
  - OXYGEN SATURATION DECREASED [None]
  - ASTHMA [None]
